FAERS Safety Report 23641290 (Version 1)
Quarter: 2024Q1

REPORT INFORMATION
  Report Type: Spontaneous
  Country: JP (occurrence: JP)
  Receive Date: 20240318
  Receipt Date: 20240318
  Transmission Date: 20240410
  Serious: Yes (Other)
  Sender: FDA-Public Use
  Company Number: JP-CHUGAI-2024007551

PATIENT
  Age: 6 Decade
  Sex: Female

DRUGS (1)
  1. VABYSMO [Suspect]
     Active Substance: FARICIMAB\FARICIMAB-SVOA
     Indication: Diabetic retinal oedema
     Dosage: 0.05 MILLILITER,ONCE EVERY TWO MONTHS
     Route: 050
     Dates: start: 20230307, end: 20240109

REACTIONS (2)
  - Astigmatism [Unknown]
  - Corneal erosion [Not Recovered/Not Resolved]

NARRATIVE: CASE EVENT DATE: 20231201
